FAERS Safety Report 4309287-7 (Version None)
Quarter: 2004Q1

REPORT INFORMATION
  Report Type: 
  Country: None (occurrence: None)
  Receive Date: 20040301
  Receipt Date: 20040210
  Transmission Date: 20041129
  Serious: Yes (Hospitalization)
  Sender: FDA-Public Use
  Company Number: 200326927BWH

PATIENT
  Age: 43 Year
  Sex: Female
  Weight: 91.4 kg

DRUGS (8)
  1. CIPRO XR [Suspect]
     Indication: CATHETER SITE INFECTION
     Dosage: 500 MG, QD, ORAL
     Route: 048
     Dates: start: 20031001, end: 20031007
  2. PTK7871ZK22584 VS PLACEBO (UNCODEABLE ^UNCLASSIFIABLE^) [Suspect]
     Indication: COLORECTAL CANCER METASTATIC
     Dates: start: 20030903, end: 20031008
  3. OXALIPLATIN [Concomitant]
  4. FLUOROURACIL [Concomitant]
  5. LEUCOVORIN [Concomitant]
  6. PERCOCET [Concomitant]
  7. PEPCID [Concomitant]
  8. ATIVAN [Concomitant]

REACTIONS (10)
  - ASTHENIA [None]
  - BREATH SOUNDS DECREASED [None]
  - DEHYDRATION [None]
  - HERPES SIMPLEX [None]
  - HYPERTENSION [None]
  - MOUTH ULCERATION [None]
  - MUCOSAL INFLAMMATION [None]
  - ORAL CANDIDIASIS [None]
  - SUPERINFECTION [None]
  - VAGINAL CANDIDIASIS [None]
